FAERS Safety Report 7481001-6 (Version None)
Quarter: 2011Q2

REPORT INFORMATION
  Report Type: 
  Country: None (occurrence: None)
  Receive Date: 20110516
  Receipt Date: 20110509
  Transmission Date: 20111010
  Serious: Yes (Other)
  Sender: FDA-Public Use
  Company Number: BR-US-EMD SERONO, INC.-7057744

PATIENT
  Sex: Female

DRUGS (3)
  1. ASSERT [Concomitant]
  2. REBIF [Suspect]
     Indication: RELAPSING-REMITTING MULTIPLE SCLEROSIS
     Dates: start: 20031113
  3. ACETAMINOPHEN [Concomitant]

REACTIONS (10)
  - MALAISE [None]
  - LABYRINTHITIS [None]
  - EYE PAIN [None]
  - INJECTION SITE NODULE [None]
  - INJECTION SITE HAEMATOMA [None]
  - MULTIPLE SCLEROSIS RELAPSE [None]
  - OCULAR DISCOMFORT [None]
  - ARTHRALGIA [None]
  - INJECTION SITE ERYTHEMA [None]
  - HEADACHE [None]
